FAERS Safety Report 7445403-6 (Version None)
Quarter: 2011Q2

REPORT INFORMATION
  Report Type: 
  Country: None (occurrence: None)
  Receive Date: 20110429
  Receipt Date: 20110412
  Transmission Date: 20111010
  Serious: Yes (Other)
  Sender: FDA-Public Use
  Company Number: PHHY2011US23703

PATIENT
  Sex: Female
  Weight: 64.399 kg

DRUGS (4)
  1. VITAMINS [Concomitant]
  2. CALCIUM [Concomitant]
  3. DIOVAN [Suspect]
     Dosage: 160 MG, QD
  4. TOPROL-XL [Concomitant]

REACTIONS (12)
  - ANGINA PECTORIS [None]
  - CORONARY ARTERY DISEASE [None]
  - HYPERTENSION [None]
  - FATIGUE [None]
  - GASTROINTESTINAL HAEMORRHAGE [None]
  - MALAISE [None]
  - OSTEOARTHRITIS [None]
  - DYSLIPIDAEMIA [None]
  - ANXIETY [None]
  - BLOOD CALCIUM INCREASED [None]
  - STRESS [None]
  - HEADACHE [None]
